FAERS Safety Report 6135079-2 (Version None)
Quarter: 2009Q1

REPORT INFORMATION
  Report Type: 
  Country: None (occurrence: None)
  Receive Date: 20090327
  Receipt Date: 20090318
  Transmission Date: 20090719
  Serious: Yes (Hospitalization)
  Sender: FDA-Public Use
  Company Number: DE-EISAI MEDIAL RESEARCH-E7273-00054-SPO-DE

PATIENT
  Sex: Male

DRUGS (4)
  1. TARGRETIN [Suspect]
     Indication: MYCOSIS FUNGOIDES
     Route: 048
     Dates: start: 20081201, end: 20090211
  2. MARCUMAR [Interacting]
     Indication: ATRIAL FIBRILLATION
     Dosage: UNKNOWN
  3. THYROXIN [Concomitant]
     Indication: MYCOSIS FUNGOIDES
     Dates: start: 20081201, end: 20090301
  4. BEZAFIBRATE [Concomitant]
     Indication: MYCOSIS FUNGOIDES
     Dates: start: 20081201, end: 20090301

REACTIONS (2)
  - DRUG INTERACTION [None]
  - ECCHYMOSIS [None]
